FAERS Safety Report 15516004 (Version 27)
Quarter: 2020Q4

REPORT INFORMATION
  Report Type: Spontaneous
  Country: US (occurrence: US)
  Receive Date: 20181017
  Receipt Date: 20201218
  Transmission Date: 20210113
  Serious: Yes (Hospitalization, Other)
  Sender: FDA-Public Use
  Company Number: US-PFIZER INC-2018416978

PATIENT
  Age: 78 Year
  Sex: Female
  Weight: 77 kg

DRUGS (36)
  1. LYRICA [Suspect]
     Active Substance: PREGABALIN
     Indication: PERIPHERAL SWELLING
     Dosage: 50 MG, 1X/DAY, (IN THE EVENING)
     Route: 048
     Dates: start: 2018, end: 2018
  2. BIOTIN [Concomitant]
     Active Substance: BIOTIN
     Indication: HAIR DISORDER
     Dosage: 1000 UG, 1X/DAY
  3. LAMICTAL [Concomitant]
     Active Substance: LAMOTRIGINE
     Indication: BIPOLAR DISORDER
     Dosage: 100 MG, 1X/DAY [ONCE IN THE MORNING]
     Route: 048
     Dates: start: 2017
  4. LATANOPROST. [Concomitant]
     Active Substance: LATANOPROST
     Indication: GLAUCOMA
     Dosage: 1 GTT, DAILY (1 DROP IN RIGHT EYE AT BEDTIME)
  5. MAGNESIUM [Concomitant]
     Active Substance: MAGNESIUM
     Indication: MUSCLE DISORDER
     Dosage: 250 MG, 1X/DAY
     Route: 048
  6. OCUVITE [Concomitant]
     Active Substance: VITAMINS
     Indication: GLAUCOMA
     Dosage: 1 DF, DAILY [1 CAPSULE AM BY MOUTH]
     Route: 048
     Dates: start: 2018
  7. OMEGA 3 FISH OIL [Concomitant]
     Active Substance: FISH OIL\OMEGA-3 FATTY ACIDS
     Indication: ROUTINE HEALTH MAINTENANCE
     Dosage: 1200 MG, 1X/DAY
     Route: 048
  8. TRAMADOL HCL [Concomitant]
     Active Substance: TRAMADOL HYDROCHLORIDE
     Indication: PAIN
     Dosage: 50 MG, AS NEEDED [1 TABLET EVERY 6HOURS AS NEEDED FOR PAIN]
  9. VITAMIN E [Concomitant]
     Active Substance: .ALPHA.-TOCOPHEROL
     Indication: EYE DISORDER
  10. VITAMIN D3 [Concomitant]
     Active Substance: CHOLECALCIFEROL
     Indication: BONE DISORDER
     Dosage: 1000 IU, 1X/DAY, [TAKES 1 TABLET A DAY BY MOUTH]
     Route: 048
  11. LYRICA [Suspect]
     Active Substance: PREGABALIN
     Indication: NEUROPATHY PERIPHERAL
     Dosage: 50 MG, 1X/DAY (TOOK IT IN THE MORNING)
  12. RESTORIL [Concomitant]
     Active Substance: TEMAZEPAM
     Indication: BIPOLAR DISORDER
     Dosage: 15 MG, 1X/DAY [ONCE A DAY AT BEDTIME]
     Route: 048
     Dates: start: 2017
  13. VITAMIN D3 [Concomitant]
     Active Substance: CHOLECALCIFEROL
     Indication: IMMUNE SYSTEM DISORDER
     Dosage: UNK, 1X/DAY
     Route: 048
  14. VITAMIN C [Concomitant]
     Active Substance: ASCORBIC ACID
     Indication: NASOPHARYNGITIS
     Dosage: 500 MG, 1X/DAY
  15. LYRICA [Suspect]
     Active Substance: PREGABALIN
     Indication: PAIN IN EXTREMITY
     Dosage: 50 MG, 1X/DAY, [ONE AT BEDTIME]
     Route: 048
     Dates: start: 20180927, end: 2018
  16. BIOTIN [Concomitant]
     Active Substance: BIOTIN
     Indication: SKIN DISORDER
     Dosage: 2 DF, 2X/DAY [TABLET, TAKE ONE IN THE MORNING AND ONE AT NIGHT BY MOUTH]
     Route: 048
  17. BIOTIN [Concomitant]
     Active Substance: BIOTIN
     Indication: NAIL DISORDER
  18. LAMICTAL [Concomitant]
     Active Substance: LAMOTRIGINE
     Indication: SLEEP DISORDER
  19. PREDNISOLONE ACETATE. [Concomitant]
     Active Substance: PREDNISOLONE ACETATE
     Indication: GLAUCOMA
     Dosage: 1 GTT, 2X/DAY (1%, 1 DROP IN LEFT EYE TWICE A DAY)
  20. WELLBUTRIN [Concomitant]
     Active Substance: BUPROPION HYDROCHLORIDE
     Dosage: 300 MG, 1X/DAY (ONCE A DAY IN THE EVENING, ALL DAY, 1AM- ALL DAY)
     Route: 048
  21. BRIMONIDINE TARTRATE. [Concomitant]
     Active Substance: BRIMONIDINE TARTRATE
     Indication: GLAUCOMA
     Dosage: 2 GTT, 1X/DAY(ONE DROP IN EACH EYE ONCE A DAY)
  22. DORZOLAMIDE HCL AND TIMOLOL MALEATE [Concomitant]
     Active Substance: DORZOLAMIDE HYDROCHLORIDE\TIMOLOL MALEATE
     Indication: EYE DISORDER
     Dosage: 1 GTT, 2X/DAY (DROP IN RIGHT EYE TWICE A DAY)
  23. LEVOTHYROXINE. [Concomitant]
     Active Substance: LEVOTHYROXINE
     Indication: THYROID DISORDER
     Dosage: 88 UG, 1X/DAY
     Route: 048
  24. RESTORIL [Concomitant]
     Active Substance: TEMAZEPAM
     Indication: SLEEP DEFICIT
     Dosage: 15 MG, 1X/DAY (DAILY IN THE MORNING, 1 PM)
     Route: 048
  25. WELLBUTRIN [Concomitant]
     Active Substance: BUPROPION HYDROCHLORIDE
     Indication: BIPOLAR DISORDER
     Dosage: 150 MG, 1X/DAY [ONCE IN THE MORNING]
     Route: 048
  26. VITAMIN E [Concomitant]
     Active Substance: .ALPHA.-TOCOPHEROL
     Indication: ROUTINE HEALTH MAINTENANCE
     Dosage: 400 IU, 1X/DAY
     Route: 048
  27. DORZOLAMIDE HCL AND TIMOLOL MALEATE [Concomitant]
     Active Substance: DORZOLAMIDE HYDROCHLORIDE\TIMOLOL MALEATE
     Indication: GLAUCOMA
     Dosage: 2 GTT, 2X/DAY [1 DROP TO BOTH EYES TWICE DAILY]
  28. OMEGA 3 FISH OIL [Concomitant]
     Active Substance: FISH OIL\OMEGA-3 FATTY ACIDS
     Indication: CARDIAC DISORDER
  29. VITAMIN E [Concomitant]
     Active Substance: .ALPHA.-TOCOPHEROL
     Indication: CARDIAC DISORDER
  30. BIOTIN [Concomitant]
     Active Substance: BIOTIN
     Indication: EYE DISORDER
  31. VITAMIN B12 [Concomitant]
     Active Substance: CYANOCOBALAMIN
     Indication: HYPERVITAMINOSIS D
     Dosage: 2500 UG, DAILY
     Route: 048
  32. LYRICA [Suspect]
     Active Substance: PREGABALIN
     Dosage: 100 MG, 1X/DAY
     Route: 048
     Dates: start: 2018
  33. LYRICA [Suspect]
     Active Substance: PREGABALIN
     Dosage: 100 MG, 1X/DAY (IN EVENING)
     Route: 048
  34. MAGNESIUM [Concomitant]
     Active Substance: MAGNESIUM
     Indication: BONE DISORDER
     Dosage: 200 MG, DAILY
     Route: 048
  35. STOOL SOFTENER (DOCUSATE) [Concomitant]
     Active Substance: DOCUSATE
     Indication: ABNORMAL FAECES
     Dosage: 200 MG, DAILY
     Route: 048
  36. VITAMIN D3 [Concomitant]
     Active Substance: CHOLECALCIFEROL
     Indication: VITAMIN D DEFICIENCY

REACTIONS (14)
  - Nephropathy [Not Recovered/Not Resolved]
  - Dry eye [Unknown]
  - Dizziness [Recovered/Resolved]
  - Pain [Unknown]
  - Body height decreased [Unknown]
  - Liver disorder [Unknown]
  - Therapeutic product effect incomplete [Unknown]
  - Eye pruritus [Unknown]
  - Hypoacusis [Unknown]
  - Eye disorder [Unknown]
  - Blindness [Unknown]
  - Headache [Recovered/Resolved]
  - Malaise [Unknown]
  - Crying [Unknown]

NARRATIVE: CASE EVENT DATE: 20180928
